FAERS Safety Report 13522207 (Version 9)
Quarter: 2017Q3

REPORT INFORMATION
  Report Type: Report from Study
  Country: CA (occurrence: CA)
  Receive Date: 20170508
  Receipt Date: 20170721
  Transmission Date: 20171127
  Serious: Yes (Other)
  Sender: FDA-Public Use
  Company Number: CA-GLAXOSMITHKLINE-CA2017GSK048116

PATIENT
  Age: 39 Year
  Sex: Female

DRUGS (3)
  1. MEPOLIZUMAB [Suspect]
     Active Substance: MEPOLIZUMAB
     Dosage: 100 MG, Z
     Route: 042
  2. PREDNISONE. [Concomitant]
     Active Substance: PREDNISONE
     Indication: PRODUCT USED FOR UNKNOWN INDICATION
     Dosage: UNK
  3. MEPOLIZUMAB [Suspect]
     Active Substance: MEPOLIZUMAB
     Indication: ASTHMA
     Dosage: 100 MG, Z
     Route: 042
     Dates: start: 20170321

REACTIONS (14)
  - Blood insulin abnormal [Unknown]
  - Blood pressure increased [Unknown]
  - Asthma [Recovering/Resolving]
  - Drug ineffective [Recovering/Resolving]
  - Rash erythematous [Unknown]
  - Urinary tract infection [Recovered/Resolved]
  - Chest discomfort [Recovered/Resolved]
  - Respiration abnormal [Unknown]
  - Blood glucose abnormal [Unknown]
  - Respiratory rate decreased [Unknown]
  - Adverse drug reaction [Unknown]
  - Blood glucose decreased [Unknown]
  - Cough [Recovered/Resolved]
  - Wheezing [Unknown]

NARRATIVE: CASE EVENT DATE: 201703
